FAERS Safety Report 25504697 (Version 1)
Quarter: 2025Q3

REPORT INFORMATION
  Report Type: Spontaneous
  Country: US (occurrence: None)
  Receive Date: 20250701
  Receipt Date: 20250701
  Transmission Date: 20251021
  Serious: Yes (Disabling, Other)
  Sender: FDA-CTU
  Company Number: None

PATIENT
  Age: 62 Year
  Sex: Female
  Weight: 96.75 kg

DRUGS (6)
  1. MOUNJARO [Suspect]
     Active Substance: TIRZEPATIDE
     Indication: Diabetes mellitus
     Route: 030
     Dates: start: 20250525, end: 20250525
  2. MOUNJARO [Suspect]
     Active Substance: TIRZEPATIDE
     Indication: Obesity
  3. DEVICE [Concomitant]
     Active Substance: DEVICE
  4. ARMOUR THYROID [Concomitant]
     Active Substance: THYROID, PORCINE
  5. DICYCLOMINE [Concomitant]
     Active Substance: DICYCLOMINE HYDROCHLORIDE
  6. TYLENOL [Concomitant]
     Active Substance: ACETAMINOPHEN

REACTIONS (14)
  - Headache [None]
  - Diplopia [None]
  - Dizziness [None]
  - Altered visual depth perception [None]
  - Eye pain [None]
  - Ocular discomfort [None]
  - Abdominal discomfort [None]
  - Impaired gastric emptying [None]
  - Eyelid ptosis [None]
  - Vision blurred [None]
  - Impaired driving ability [None]
  - Gait disturbance [None]
  - Thinking abnormal [None]
  - Nervous system disorder [None]

NARRATIVE: CASE EVENT DATE: 20250525
